FAERS Safety Report 21487794 (Version 1)
Quarter: 2022Q4

REPORT INFORMATION
  Report Type: Spontaneous
  Country: DE (occurrence: DE)
  Receive Date: 20221020
  Receipt Date: 20221020
  Transmission Date: 20230113
  Serious: Yes (Other)
  Sender: FDA-Public Use
  Company Number: DE-AVENTIS-200613267DE

PATIENT
  Age: 56 Year
  Sex: Male

DRUGS (1)
  1. SABRIL [Suspect]
     Active Substance: VIGABATRIN
     Indication: Temporal lobe epilepsy
     Dosage: 500 MG, QD
     Route: 048
     Dates: start: 2001, end: 2004

REACTIONS (3)
  - Visual field defect [Unknown]
  - Hypermetropia [Unknown]
  - Optic atrophy [Unknown]
